FAERS Safety Report 6259878-1 (Version None)
Quarter: 2009Q3

REPORT INFORMATION
  Report Type: 
  Country: None (occurrence: None)
  Receive Date: 20090706
  Receipt Date: 20090706
  Transmission Date: 20100115
  Serious: Yes (Other)
  Sender: FDA-Public Use
  Company Number: None

PATIENT
  Age: 2 Month
  Sex: Female
  Weight: 5.8968 kg

DRUGS (1)
  1. JOLIVETTE WATSON [Suspect]
     Indication: CONTRACEPTION
     Dosage: 1 QD PO
     Route: 048
     Dates: start: 20090626, end: 20090701

REACTIONS (2)
  - BREAST ENLARGEMENT [None]
  - MATERNAL DRUGS AFFECTING FOETUS [None]
